FAERS Safety Report 15439223 (Version 1)
Quarter: 2018Q3

REPORT INFORMATION
  Report Type: Spontaneous
  Country: US (occurrence: US)
  Receive Date: 20180924
  Receipt Date: 20180924
  Transmission Date: 20181010
  Serious: No
  Sender: FDA-Public Use
  Company Number: None

PATIENT
  Age: 72 Year
  Sex: Female
  Weight: 44.45 kg

DRUGS (8)
  1. PROLIA [Concomitant]
     Active Substance: DENOSUMAB
  2. CELEXA [Concomitant]
     Active Substance: CITALOPRAM HYDROBROMIDE
  3. SYNTHROID [Concomitant]
     Active Substance: LEVOTHYROXINE SODIUM
  4. KETOCONAZOLE 2% [Suspect]
     Active Substance: KETOCONAZOLE
     Indication: FUNGAL INFECTION
     Dosage: ?          QUANTITY:APPLY TO LOWR LEGS;OTHER FREQUENCY:FEET/TOES 2X DAILY;OTHER ROUTE:ON SKIN?
     Dates: start: 20180808, end: 20180814
  5. KLONOPIN [Concomitant]
     Active Substance: CLONAZEPAM
  6. FIOROCET [Concomitant]
  7. ASA 81MG [Concomitant]
  8. INDERAL [Concomitant]
     Active Substance: PROPRANOLOL HYDROCHLORIDE

REACTIONS (8)
  - Application site pruritus [None]
  - Application site discolouration [None]
  - Application site burn [None]
  - Application site pain [None]
  - Application site erythema [None]
  - Application site swelling [None]
  - Allergic reaction to excipient [None]
  - Application site exfoliation [None]

NARRATIVE: CASE EVENT DATE: 20180808
